FAERS Safety Report 16043579 (Version 1)
Quarter: 2019Q1

REPORT INFORMATION
  Report Type: Spontaneous
  Country: NO (occurrence: NO)
  Receive Date: 20190306
  Receipt Date: 20190306
  Transmission Date: 20190418
  Serious: Yes (Other)
  Sender: FDA-Public Use
  Company Number: NO-BAYER-2019-043573

PATIENT
  Sex: Female
  Weight: 56 kg

DRUGS (2)
  1. MIRENA [Suspect]
     Active Substance: LEVONORGESTREL
  2. MIRENA [Suspect]
     Active Substance: LEVONORGESTREL
     Dosage: 20 MCG/24HR, CONT
     Route: 015
     Dates: start: 20060801, end: 20181204

REACTIONS (24)
  - Palpitations [Recovering/Resolving]
  - Insomnia [Recovering/Resolving]
  - Psychomotor hyperactivity [Recovering/Resolving]
  - Abdominal pain [Recovering/Resolving]
  - Diarrhoea [Recovering/Resolving]
  - Visual impairment [Recovering/Resolving]
  - Alopecia [Recovering/Resolving]
  - Nausea [Unknown]
  - Acne [Recovering/Resolving]
  - Cystitis noninfective [Recovering/Resolving]
  - Cystitis [Recovering/Resolving]
  - Musculoskeletal discomfort [Recovering/Resolving]
  - Depression [Recovering/Resolving]
  - Sinusitis [Recovering/Resolving]
  - Ear infection fungal [Recovering/Resolving]
  - Lactose intolerance [Unknown]
  - Migraine [Recovering/Resolving]
  - Inflammatory bowel disease [Recovering/Resolving]
  - Neuralgia [Unknown]
  - Fatigue [Recovering/Resolving]
  - Back pain [Unknown]
  - Vulvovaginal mycotic infection [Recovering/Resolving]
  - Anxiety [Recovering/Resolving]
  - Gluten sensitivity [Unknown]

NARRATIVE: CASE EVENT DATE: 20060801
